FAERS Safety Report 22040975 (Version 1)
Quarter: 2023Q1

REPORT INFORMATION
  Report Type: Spontaneous
  Country: CA (occurrence: CA)
  Receive Date: 20230227
  Receipt Date: 20230227
  Transmission Date: 20230418
  Serious: Yes (Hospitalization)
  Sender: FDA-Public Use
  Company Number: CA-009507513-2302CAN007521

PATIENT
  Age: 57 Year
  Sex: Female
  Weight: 82 kg

DRUGS (7)
  1. KEYTRUDA [Suspect]
     Active Substance: PEMBROLIZUMAB
     Indication: Lung neoplasm malignant
     Dosage: 170.0 MILLIGRAM, EVERY 21 DAYS.  I.V. INFUSION. SINGLE USE VIAL
     Route: 041
  2. ALIMTA [Suspect]
     Active Substance: PEMETREXED DISODIUM
     Indication: Lung neoplasm malignant
     Dosage: 975.0 MILLIGRAM, EVERY 21 DAYS
     Route: 042
  3. CARBOPLATIN [Suspect]
     Active Substance: CARBOPLATIN
     Indication: Lung neoplasm malignant
     Dosage: 975.0 MILLIGRAM, EVERY 21 DAYS
     Route: 041
  4. CARBOPLATIN [Suspect]
     Active Substance: CARBOPLATIN
     Dosage: UNK
  5. ACETAMINOPHEN [Concomitant]
     Active Substance: ACETAMINOPHEN
     Dosage: NOT SPECIFIED
  6. FOLIC ACID [Concomitant]
     Active Substance: FOLIC ACID
     Dosage: NOT SPECIFIED
  7. VITAMIN B12 [Concomitant]
     Active Substance: CYANOCOBALAMIN

REACTIONS (2)
  - Pneumonia bacterial [Recovered/Resolved]
  - Pneumonitis [Recovered/Resolved]
